FAERS Safety Report 19389912 (Version 6)
Quarter: 2021Q3

REPORT INFORMATION
  Report Type: Spontaneous
  Country: US (occurrence: US)
  Receive Date: 20210608
  Receipt Date: 20210927
  Transmission Date: 20211014
  Serious: No
  Sender: FDA-Public Use
  Company Number: US-BRISTOL-MYERS SQUIBB COMPANY-BMS-2021-055416

PATIENT
  Age: 79 Year
  Sex: Male
  Weight: 97.51 kg

DRUGS (10)
  1. HYDREA [Suspect]
     Active Substance: HYDROXYUREA
     Indication: MYELOFIBROSIS
  2. TURMERIC [CURCUMA LONGA] [Concomitant]
     Active Substance: HERBALS\TURMERIC
     Indication: PRODUCT USED FOR UNKNOWN INDICATION
     Dosage: UNK
     Route: 065
  3. ZINC. [Concomitant]
     Active Substance: ZINC
     Indication: PRODUCT USED FOR UNKNOWN INDICATION
     Dosage: UNK
     Route: 065
  4. VITAMIN C [Concomitant]
     Active Substance: ASCORBIC ACID
     Indication: PRODUCT USED FOR UNKNOWN INDICATION
     Dosage: UNK
     Route: 065
  5. VITAMIN B12 [MECOBALAMIN] [Concomitant]
     Active Substance: METHYLCOBALAMIN
     Indication: PRODUCT USED FOR UNKNOWN INDICATION
     Dosage: UNK
     Route: 065
  6. HYDREA [Suspect]
     Active Substance: HYDROXYUREA
     Indication: PLATELET COUNT INCREASED
     Dosage: 500 MILLIGRAM, EVERY OTHER DAY
     Route: 048
     Dates: start: 2018, end: 20210528
  7. VITAMIN D [COLECALCIFEROL] [Concomitant]
     Active Substance: CHOLECALCIFEROL
     Indication: PRODUCT USED FOR UNKNOWN INDICATION
     Dosage: UNK
     Route: 065
  8. ALPRAZOLAM. [Concomitant]
     Active Substance: ALPRAZOLAM
     Indication: PRODUCT USED FOR UNKNOWN INDICATION
     Dosage: UNK
     Route: 065
  9. HYDREA [Suspect]
     Active Substance: HYDROXYUREA
     Indication: SPLENOMEGALY
  10. FLOMAX [Concomitant]
     Active Substance: TAMSULOSIN HYDROCHLORIDE
     Indication: NEOPLASM MALIGNANT
     Dosage: UNK
     Route: 065

REACTIONS (15)
  - Treatment noncompliance [Unknown]
  - Lip swelling [Unknown]
  - Lip discolouration [Unknown]
  - Lip dry [Unknown]
  - Madarosis [Unknown]
  - Oral discomfort [Unknown]
  - Pruritus [Unknown]
  - Lip pain [Unknown]
  - Rash [Unknown]
  - Fatigue [Unknown]
  - Cheilitis [Unknown]
  - Fungal infection [Unknown]
  - Splenomegaly [Unknown]
  - Chapped lips [Not Recovered/Not Resolved]
  - Platelet count decreased [None]

NARRATIVE: CASE EVENT DATE: 202105
